FAERS Safety Report 15276588 (Version 1)
Quarter: 2018Q3

REPORT INFORMATION
  Report Type: Spontaneous
  Country: GU (occurrence: GU)
  Receive Date: 20180729
  Receipt Date: 20180729
  Transmission Date: 20181010
  Serious: Yes (Other)
  Sender: FDA-Public Use
  Company Number: None

PATIENT
  Age: 70 Year
  Weight: 73.8 kg

DRUGS (17)
  1. METFORMIN [Suspect]
     Active Substance: METFORMIN HYDROCHLORIDE
     Indication: DIABETES MELLITUS
     Route: 048
     Dates: start: 20180722, end: 20180723
  2. AVODART 5 MG [Concomitant]
     Dates: start: 20110701
  3. PROAIR HFQ [Concomitant]
     Dates: start: 20070701
  4. CLONAZEPAM 0.25 MG [Concomitant]
     Dates: start: 20040701
  5. AMLODIPINE [Concomitant]
     Active Substance: AMLODIPINE BESYLATE
  6. MOTRIN IB [Concomitant]
     Active Substance: IBUPROFEN
  7. AMLODPINE 5 MG [Concomitant]
     Dates: start: 20170701
  8. LOSARTAN 50 MG [Concomitant]
     Active Substance: LOSARTAN
     Dates: start: 20170701
  9. ROSUVASTATIN 5 MG [Concomitant]
     Active Substance: ROSUVASTATIN
     Dates: start: 20170701
  10. MOTRIN IB [Concomitant]
     Active Substance: IBUPROFEN
     Dates: start: 20180501
  11. AVODART [Concomitant]
     Active Substance: DUTASTERIDE
  12. CLONAZEPAM. [Concomitant]
     Active Substance: CLONAZEPAM
  13. RAPAFLO 4 MG [Concomitant]
     Dates: start: 20110701
  14. RAPAFLO [Suspect]
     Active Substance: SILODOSIN
  15. LOSARTAN. [Concomitant]
     Active Substance: LOSARTAN
  16. PROAIR HFQ [Concomitant]
  17. ROSUVASTATIN. [Concomitant]
     Active Substance: ROSUVASTATIN

REACTIONS (4)
  - Headache [None]
  - Pain of skin [None]
  - Musculoskeletal pain [None]
  - Neck pain [None]

NARRATIVE: CASE EVENT DATE: 20180722
